FAERS Safety Report 21790300 (Version 1)
Quarter: 2022Q4

REPORT INFORMATION
  Report Type: Spontaneous
  Country: CN (occurrence: CN)
  Receive Date: 20221228
  Receipt Date: 20221228
  Transmission Date: 20230112
  Serious: Yes (Other)
  Sender: FDA-Public Use
  Company Number: CN-MYLANLABS-2022M1146919

PATIENT
  Age: 71 Year
  Sex: Male
  Weight: 51 kg

DRUGS (1)
  1. CELEBREX [Suspect]
     Active Substance: CELECOXIB
     Indication: Pain
     Dosage: 1 DOSAGE FORM, BID
     Route: 048
     Dates: start: 20221216, end: 20221220

REACTIONS (2)
  - Pruritus [Recovering/Resolving]
  - Erythema [Recovering/Resolving]

NARRATIVE: CASE EVENT DATE: 20221220
